FAERS Safety Report 7525119-8 (Version None)
Quarter: 2011Q2

REPORT INFORMATION
  Report Type: 
  Country: None (occurrence: None)
  Receive Date: 20110606
  Receipt Date: 20091120
  Transmission Date: 20111010
  Serious: Yes (Other)
  Sender: FDA-Public Use
  Company Number: US-BAYER-200940935NA

PATIENT
  Age: 63 Year
  Sex: Male
  Weight: 113 kg

DRUGS (6)
  1. HEPARIN [Concomitant]
     Dosage: 5000 U, UNK
     Route: 042
     Dates: start: 20050422, end: 20050422
  2. ZINACEF [Concomitant]
     Dosage: UNK
     Route: 042
     Dates: start: 20050422, end: 20050422
  3. TOPROL-XL [Concomitant]
     Route: 048
  4. LASIX [Concomitant]
     Dosage: 40 MG, UNK
     Route: 042
     Dates: start: 20050422, end: 20050422
  5. TRASYLOL [Suspect]
     Indication: CORONARY ARTERY BYPASS
     Dosage: UNK
     Dates: start: 20050422
  6. LIDOCAINE [Concomitant]
     Dosage: 12.5 MG, UNK
     Route: 042
     Dates: start: 20050422, end: 20050422

REACTIONS (11)
  - MULTI-ORGAN FAILURE [None]
  - UNEVALUABLE EVENT [None]
  - DEPRESSION [None]
  - ANHEDONIA [None]
  - PAIN [None]
  - RENAL INJURY [None]
  - RENAL FAILURE [None]
  - ANXIETY [None]
  - DISABILITY [None]
  - INJURY [None]
  - FEAR [None]
